FAERS Safety Report 17143775 (Version 3)
Quarter: 2020Q2

REPORT INFORMATION
  Report Type: Spontaneous
  Country: US (occurrence: US)
  Receive Date: 20191212
  Receipt Date: 20200513
  Transmission Date: 20200713
  Serious: Yes (Other)
  Sender: FDA-Public Use
  Company Number: US-JNJFOC-20191211282

PATIENT
  Age: 64 Year
  Sex: Male

DRUGS (3)
  1. SIMPONI ARIA [Suspect]
     Active Substance: GOLIMUMAB
     Indication: RHEUMATOID ARTHRITIS
     Route: 042
     Dates: start: 201908
  2. METHOTREXATE. [Concomitant]
     Active Substance: METHOTREXATE
     Indication: RHEUMATOID ARTHRITIS
  3. SIMPONI ARIA [Suspect]
     Active Substance: GOLIMUMAB
     Route: 042
     Dates: start: 201909

REACTIONS (5)
  - Bronchitis [Unknown]
  - Incorrect dose administered [Unknown]
  - Asthma [Unknown]
  - Disability [Unknown]
  - Pneumonia [Unknown]

NARRATIVE: CASE EVENT DATE: 201908
